FAERS Safety Report 4378489-6 (Version None)
Quarter: 2004Q2

REPORT INFORMATION
  Report Type: 
  Country: None (occurrence: None)
  Receive Date: 20040609
  Receipt Date: 20040526
  Transmission Date: 20050107
  Serious: Yes (Other)
  Sender: FDA-Public Use
  Company Number: A03200401720

PATIENT
  Sex: Female

DRUGS (1)
  1. AMBIEN [Suspect]
     Dosage: 10 MG ONCE - ORAL
     Route: 048
     Dates: start: 20031101, end: 20031101

REACTIONS (3)
  - AMNESIA [None]
  - MEDICATION ERROR [None]
  - SEXUAL ABUSE [None]
